FAERS Safety Report 17630415 (Version 1)
Quarter: 2020Q2

REPORT INFORMATION
  Report Type: Spontaneous
  Country: US (occurrence: US)
  Receive Date: 20200406
  Receipt Date: 20200406
  Transmission Date: 20200713
  Serious: No
  Sender: FDA-Public Use
  Company Number: US-CELGENEUS-USA-20200310663

PATIENT
  Sex: Male

DRUGS (6)
  1. REVLIMID [Suspect]
     Active Substance: LENALIDOMIDE
     Dosage: 15 MILLIGRAM
     Route: 048
     Dates: start: 201607
  2. REVLIMID [Suspect]
     Active Substance: LENALIDOMIDE
     Dosage: 25 MILLIGRAM
     Route: 048
     Dates: start: 201709
  3. REVLIMID [Suspect]
     Active Substance: LENALIDOMIDE
     Indication: PLASMA CELL MYELOMA
     Dosage: 15 MILLIGRAM
     Route: 048
     Dates: start: 20160205
  4. REVLIMID [Suspect]
     Active Substance: LENALIDOMIDE
     Dosage: 20-25 MG
     Route: 048
     Dates: start: 201602
  5. REVLIMID [Suspect]
     Active Substance: LENALIDOMIDE
     Dosage: 10-15MILLIGRAMS
     Route: 048
     Dates: start: 201701
  6. REVLIMID [Suspect]
     Active Substance: LENALIDOMIDE
     Dosage: 15 MILLIGRAM
     Route: 048
     Dates: start: 201912

REACTIONS (3)
  - Pruritus [Unknown]
  - Adverse event [Unknown]
  - Product dose omission [Unknown]
